FAERS Safety Report 7726502-8 (Version None)
Quarter: 2011Q3

REPORT INFORMATION
  Report Type: 
  Country: None (occurrence: None)
  Receive Date: 20110902
  Receipt Date: 20110829
  Transmission Date: 20111222
  Serious: Yes (Hospitalization)
  Sender: FDA-Public Use
  Company Number: CA-PFIZER INC-2011200783

PATIENT
  Age: 86 Year
  Sex: Female

DRUGS (5)
  1. COZAAR [Concomitant]
     Indication: HYPERTENSION
     Dosage: 100 MG (2 TABS OF 50MG), DAILY
  2. XALATAN [Suspect]
     Indication: GLAUCOMA
     Dosage: 1 GTT IN THE RIGHT EYE, 1X/DAY
     Route: 047
  3. TYLENOL-500 [Concomitant]
     Indication: ARTHRITIS
     Dosage: AS NEEDED
  4. HYDROCHLOROTHIAZIDE [Concomitant]
     Indication: HYPERTENSION
     Dosage: 50 MG, 1X/DAY
  5. ATENOLOL [Concomitant]
     Indication: HYPERTENSION
     Dosage: 50 MG, 1X/DAY

REACTIONS (2)
  - ELBOW OPERATION [None]
  - FALL [None]
